FAERS Safety Report 10977745 (Version 1)
Quarter: 2015Q1

REPORT INFORMATION
  Report Type: Spontaneous
  Country: CN (occurrence: None)
  Receive Date: 20150330
  Receipt Date: 20150330
  Transmission Date: 20150721
  Serious: Yes (Other)
  Sender: FDA-Public Use
  Company Number: 2015SEB00019

PATIENT
  Sex: Female

DRUGS (1)
  1. MIACALCIC [Suspect]
     Active Substance: CALCITONIN SALMON
     Indication: OSTEOPOROSIS
     Route: 051
     Dates: start: 20150311

REACTIONS (1)
  - Respiratory tract congestion [None]

NARRATIVE: CASE EVENT DATE: 201503
